FAERS Safety Report 11171151 (Version 1)
Quarter: 2015Q2

REPORT INFORMATION
  Report Type: Spontaneous
  Country: US (occurrence: None)
  Receive Date: 20150515
  Receipt Date: 20150515
  Transmission Date: 20150821
  Serious: Yes (Other)
  Sender: FDA-Public Use
  Company Number: 2014011991

PATIENT
  Age: 56 Year
  Sex: Female
  Weight: 76.6 kg

DRUGS (15)
  1. CIMZIA [Suspect]
     Active Substance: CERTOLIZUMAB PEGOL
     Indication: CROHN^S DISEASE
     Dosage: EV 4 WEEKS (EACH INJECTION 200 MG)
     Route: 058
     Dates: start: 2013
  2. CIMZIA [Suspect]
     Active Substance: CERTOLIZUMAB PEGOL
     Dosage: EV 4 WEEKS (EACH INJECTION 200 MG)
     Route: 058
     Dates: start: 2013
  3. COLAZAL (BALSALAZIDE SODIUM) [Concomitant]
  4. SINGULAIR (MONTELUKAST SODIUM) [Concomitant]
  5. NASOCORT (BUDESONIDE) [Concomitant]
  6. LOMOTIL (ATROPIN SULFATE, DIPHENOXYLATE HYDROCHLORIDE) [Concomitant]
  7. SYMBICORT [Concomitant]
     Active Substance: BUDESONIDE\FORMOTEROL FUMARATE DIHYDRATE
  8. VITAMIN D (COLECALCIFEROL) [Concomitant]
  9. DIAZEPAM. [Concomitant]
     Active Substance: DIAZEPAM
  10. DICYCLOMINE [Concomitant]
     Active Substance: DICYCLOMINE HYDROCHLORIDE
  11. LASIX (FUROSEMDIE SODIUM) [Concomitant]
  12. ALBUTEROL (SALBUTAMOL SULFATE) [Concomitant]
  13. IMITREX [Concomitant]
     Active Substance: SUMATRIPTAN\SUMATRIPTAN SUCCINATE
  14. FIORICET (BUTALBITAL, CAFFEINE, PARACETAMOL) [Concomitant]
  15. MUCINEX (GUAIFENESIN) [Concomitant]

REACTIONS (3)
  - Sinusitis [None]
  - Headache [None]
  - Bronchitis [None]

NARRATIVE: CASE EVENT DATE: 201409
